FAERS Safety Report 4828981-2 (Version None)
Quarter: 2005Q4

REPORT INFORMATION
  Report Type: 
  Country: None (occurrence: None)
  Receive Date: 20051014
  Receipt Date: 20050823
  Transmission Date: 20060501
  Serious: No
  Sender: FDA-Public Use
  Company Number: 2005SP002475

PATIENT
  Age: 56 Year
  Sex: Female
  Weight: 60.782 kg

DRUGS (5)
  1. LUNESTA [Suspect]
     Indication: SLEEP DISORDER
     Dosage: 2 MG;HS;ORAL
     Route: 048
     Dates: start: 20050822
  2. LEVAQUIN [Concomitant]
  3. PREDNISONE [Concomitant]
  4. LASIX [Concomitant]
  5. POTASSIUM [Concomitant]

REACTIONS (3)
  - DYSGEUSIA [None]
  - HEART RATE INCREASED [None]
  - PARADOXICAL DRUG REACTION [None]
